FAERS Safety Report 5663351-9 (Version None)
Quarter: 2008Q1

REPORT INFORMATION
  Report Type: 
  Country: None (occurrence: None)
  Receive Date: 20080313
  Receipt Date: 20080306
  Transmission Date: 20080703
  Serious: Yes (Other)
  Sender: FDA-Public Use
  Company Number: US-ELI_LILLY_AND_COMPANY-US200802002285

PATIENT
  Sex: Male

DRUGS (3)
  1. HUMATROPE [Suspect]
     Indication: DWARFISM
     Dosage: 0.8 MG, UNKNOWN
     Dates: start: 20000701
  2. LETROZOLE [Concomitant]
     Indication: DELAYED PUBERTY
     Dosage: 2.5 MG, UNKNOWN
     Route: 048
     Dates: start: 20060901
  3. MIRALAX [Concomitant]
     Indication: CONSTIPATION
     Dosage: UNK, OTHER
     Route: 048
     Dates: start: 20040224

REACTIONS (2)
  - ARNOLD-CHIARI MALFORMATION [None]
  - SYRINGOMYELIA [None]
